FAERS Safety Report 13125736 (Version 1)
Quarter: 2017Q1

REPORT INFORMATION
  Report Type: Spontaneous
  Country: US (occurrence: US)
  Receive Date: 20170118
  Receipt Date: 20170118
  Transmission Date: 20170428
  Serious: No
  Sender: FDA-Public Use
  Company Number: US-TEVA-725519ACC

PATIENT
  Sex: Female

DRUGS (1)
  1. COPAXONE [Suspect]
     Active Substance: GLATIRAMER ACETATE
     Indication: MULTIPLE SCLEROSIS
     Dosage: THRICE IN A WEEK
     Route: 058
     Dates: start: 20160512

REACTIONS (3)
  - Injection site reaction [Unknown]
  - Injection site swelling [Unknown]
  - Injection site mass [Unknown]
